FAERS Safety Report 8918105 (Version 1)
Quarter: 2012Q4

REPORT INFORMATION
  Report Type: 
  Country: US (occurrence: US)
  Receive Date: 20121120
  Receipt Date: 20121120
  Transmission Date: 20130627
  Serious: Yes (Other)
  Sender: FDA-Public Use
  Company Number: PHHY2012US105150

PATIENT
  Age: 66 Year
  Sex: Male

DRUGS (9)
  1. FLUOXETINE [Suspect]
     Indication: DEPRESSION
     Dosage: 20 mg, UNK
  2. FLUOXETINE [Suspect]
     Indication: ANXIETY
     Dosage: 10 mg per day every 6?8 weeks
  3. FLUOXETINE [Suspect]
     Dosage: 50 mg daily 6 months
  4. FLUOXETINE [Suspect]
     Dosage: 60 mg daily
  5. FLUOXETINE [Suspect]
     Dosage: 20 mg, UNK
  6. CARBIDOPA/LEVODOPA [Concomitant]
     Dosage: 25/100 mg TID
  7. VENLAFAXINE [Concomitant]
     Dosage: 37.5 mg, UNK
  8. VENLAFAXINE [Concomitant]
     Dosage: 75 mg, UNK
  9. TRAZODONE [Concomitant]
     Indication: INSOMNIA
     Dosage: 50 mg, UNK

REACTIONS (7)
  - Tardive dyskinesia [Recovering/Resolving]
  - Dysphagia [Recovering/Resolving]
  - Tongue paralysis [Recovering/Resolving]
  - Tremor [Recovering/Resolving]
  - Muscle tightness [Recovering/Resolving]
  - Depression [Recovering/Resolving]
  - Anxiety [Recovering/Resolving]
